FAERS Safety Report 4309979-X (Version None)
Quarter: 2004Q1

REPORT INFORMATION
  Report Type: 
  Country: None (occurrence: None)
  Receive Date: 20040303
  Receipt Date: 20040223
  Transmission Date: 20041129
  Serious: Yes (Other)
  Sender: FDA-Public Use
  Company Number: 200411467US

PATIENT
  Age: 42 Year
  Sex: Female

DRUGS (1)
  1. ALLEGRA-D [Suspect]
     Indication: MULTIPLE ALLERGIES
     Dosage: DOSE: 60/120
     Dates: start: 20030201, end: 20040201

REACTIONS (7)
  - ABDOMINAL PAIN [None]
  - CHANGE OF BOWEL HABIT [None]
  - DIARRHOEA [None]
  - HAEMATOCHEZIA [None]
  - LOSS OF CONSCIOUSNESS [None]
  - MALAISE [None]
  - WEIGHT DECREASED [None]
